FAERS Safety Report 4355820-9 (Version None)
Quarter: 2004Q2

REPORT INFORMATION
  Report Type: 
  Country: None (occurrence: None)
  Receive Date: 20040511
  Receipt Date: 20020709
  Transmission Date: 20050107
  Serious: Yes (Other)
  Sender: FDA-Public Use
  Company Number: 200217126US

PATIENT
  Sex: Male
  Weight: 93 kg

DRUGS (16)
  1. ARAVA [Suspect]
     Indication: RHEUMATOID ARTHRITIS
     Dates: start: 20010114, end: 20020701
  2. ENBREL [Suspect]
     Indication: RHEUMATOID ARTHRITIS
     Dates: start: 20011201
  3. PLAQUENIL [Suspect]
     Indication: RHEUMATOID ARTHRITIS
  4. PREDNISONE [Suspect]
     Indication: RHEUMATOID ARTHRITIS
     Dosage: DOSE: UNKNOWN
  5. PRILOSEC [Concomitant]
     Indication: GASTROOESOPHAGEAL REFLUX DISEASE
  6. VIOXX [Concomitant]
     Dosage: DOSE: UNKNOWN
  7. CELEBREX [Concomitant]
     Dosage: DOSE: UNKNOWN
  8. METHOTREXATE [Concomitant]
     Dosage: DOSE: UNKNOWN
  9. CHROMAGEN [Concomitant]
     Dosage: DOSE: UNKNOWN
  10. MOBIC [Concomitant]
     Dosage: DOSE: UNKNOWN
  11. AMBIEN [Concomitant]
     Indication: SOMNOLENCE
  12. VICODIN [Concomitant]
     Indication: PAIN
     Dosage: DOSE: UNKNOWN
  13. ARTHROTEC [Concomitant]
  14. CITRACAL + D [Concomitant]
     Dosage: DOSE: UNKNOWN
  15. FENOPROFEN CALCIUM [Concomitant]
  16. VITAMIN E [Concomitant]
     Dosage: DOSE: UNKNOWN

REACTIONS (9)
  - ANAEMIA [None]
  - ASTHENIA [None]
  - LARYNGITIS [None]
  - LOCAL SWELLING [None]
  - LUNG NEOPLASM MALIGNANT [None]
  - NECK MASS [None]
  - SMALL INTESTINE CARCINOMA [None]
  - SQUAMOUS CELL CARCINOMA [None]
  - THROAT CANCER [None]
